FAERS Safety Report 12136847 (Version 10)
Quarter: 2017Q1

REPORT INFORMATION
  Report Type: Report from Study
  Country: US (occurrence: US)
  Receive Date: 20160302
  Receipt Date: 20170118
  Transmission Date: 20170428
  Serious: Yes (Hospitalization, Other)
  Sender: FDA-Public Use
  Company Number: US-BAYER-2015-363133

PATIENT
  Age: 69 Year
  Sex: Female
  Weight: 57.14 kg

DRUGS (12)
  1. ADEMPAS [Suspect]
     Active Substance: RIOCIGUAT
     Indication: PULMONARY HYPERTENSION
     Dosage: UNK
     Route: 048
     Dates: start: 20150610
  2. ADEMPAS [Suspect]
     Active Substance: RIOCIGUAT
     Indication: PULMONARY HYPERTENSION
     Dosage: 1.5 MG, TID
     Route: 048
  3. ADEMPAS [Suspect]
     Active Substance: RIOCIGUAT
     Indication: PULMONARY HYPERTENSION
     Dosage: 2.5 MG, TID
     Route: 048
  4. ADEMPAS [Suspect]
     Active Substance: RIOCIGUAT
     Indication: PULMONARY HYPERTENSION
     Dosage: 2.5 MG, TID
     Route: 048
  5. ADEMPAS [Suspect]
     Active Substance: RIOCIGUAT
     Indication: PULMONARY HYPERTENSION
     Dosage: 1 MG, TID
     Route: 048
  6. ADEMPAS [Suspect]
     Active Substance: RIOCIGUAT
     Indication: PULMONARY HYPERTENSION
     Dosage: 2.5 MG, TID
     Route: 048
  7. ADEMPAS [Suspect]
     Active Substance: RIOCIGUAT
     Indication: PULMONARY HYPERTENSION
     Dosage: 2 MG, TID
     Route: 048
  8. ADEMPAS [Suspect]
     Active Substance: RIOCIGUAT
     Indication: PULMONARY HYPERTENSION
     Dosage: 2.5 MG, TID
     Route: 048
  9. ADEMPAS [Suspect]
     Active Substance: RIOCIGUAT
     Indication: PULMONARY HYPERTENSION
     Dosage: 2.5 MG, TID
     Route: 048
  10. ADEMPAS [Suspect]
     Active Substance: RIOCIGUAT
     Indication: PULMONARY HYPERTENSION
     Dosage: 2.5 MG, TID
     Route: 048
  11. REMODULIN [Concomitant]
     Active Substance: TREPROSTINIL
     Dosage: UNK
  12. ADEMPAS [Suspect]
     Active Substance: RIOCIGUAT
     Indication: PULMONARY HYPERTENSION
     Dosage: 2.5 MG, TID
     Route: 048

REACTIONS (33)
  - Pain in extremity [Unknown]
  - Pulmonary arterial hypertension [Unknown]
  - Catheter site haemorrhage [Unknown]
  - Catheter site discharge [Not Recovered/Not Resolved]
  - Fatigue [Unknown]
  - Renal failure [None]
  - Malaise [Unknown]
  - Polyuria [None]
  - Blood pressure decreased [Unknown]
  - Dyspnoea exertional [Unknown]
  - Hypotension [Unknown]
  - Dizziness [Unknown]
  - Vertigo positional [Unknown]
  - Peripheral swelling [Unknown]
  - Complication associated with device [Unknown]
  - Catheterisation cardiac [Unknown]
  - Pleural effusion [None]
  - Dyspnoea [Unknown]
  - Fluid retention [Unknown]
  - Dyspepsia [Unknown]
  - Fluid retention [Unknown]
  - Presyncope [Unknown]
  - Fall [Unknown]
  - Blood pressure decreased [None]
  - Limb discomfort [Unknown]
  - Fluid overload [Unknown]
  - Contusion [Unknown]
  - Renal disorder [Unknown]
  - Pulmonary hypertension [Unknown]
  - Dyspnoea [Unknown]
  - Nausea [Unknown]
  - Blister [Unknown]
  - Limb injury [Unknown]

NARRATIVE: CASE EVENT DATE: 20150820
